FAERS Safety Report 15100664 (Version 2)
Quarter: 2018Q3

REPORT INFORMATION
  Report Type: Spontaneous
  Country: US (occurrence: US)
  Receive Date: 20180703
  Receipt Date: 20180723
  Transmission Date: 20181010
  Serious: Yes (Other)
  Sender: FDA-Public Use
  Company Number: US-APOTEX-2018AP016373

PATIENT
  Age: 65 Year
  Sex: Female

DRUGS (1)
  1. FLUTICASONE PROPIONATE NASAL SPRAY USP [Suspect]
     Active Substance: FLUTICASONE PROPIONATE
     Indication: PRODUCT USED FOR UNKNOWN INDICATION
     Dosage: UNK ROUTE: NOSTRIL
     Route: 045
     Dates: start: 2013

REACTIONS (7)
  - Headache [Unknown]
  - Vertigo [Not Recovered/Not Resolved]
  - Paranasal sinus discomfort [Unknown]
  - Ear pain [Not Recovered/Not Resolved]
  - Eye pain [Not Recovered/Not Resolved]
  - Dysphonia [Unknown]
  - Nausea [Unknown]

NARRATIVE: CASE EVENT DATE: 201804
